FAERS Safety Report 13908729 (Version 2)
Quarter: 2017Q3

REPORT INFORMATION
  Report Type: Report from Study
  Country: None (occurrence: US)
  Receive Date: 20170827
  Receipt Date: 20170911
  Transmission Date: 20171127
  Serious: Yes (Death, Other)
  Sender: FDA-Public Use
  Company Number: US-ABBVIE-17K-163-2083906-00

PATIENT
  Age: 64 Year
  Sex: Female
  Weight: 72.64 kg

DRUGS (11)
  1. ASPIRIN. [Concomitant]
     Active Substance: ASPIRIN
     Indication: CARDIAC DISORDER
  2. TRAMADOL. [Concomitant]
     Active Substance: TRAMADOL
     Indication: PAIN
  3. PREDNISONE. [Concomitant]
     Active Substance: PREDNISONE
     Indication: RHEUMATOID ARTHRITIS
  4. SIMPONI [Concomitant]
     Active Substance: GOLIMUMAB
     Indication: RHEUMATOID ARTHRITIS
  5. FISH OIL [Concomitant]
     Active Substance: FISH OIL
     Indication: PRODUCT USED FOR UNKNOWN INDICATION
  6. VITAMIN B12 [Concomitant]
     Active Substance: CYANOCOBALAMIN
     Indication: VITAMIN SUPPLEMENTATION
  7. RASUVO [Concomitant]
     Active Substance: METHOTREXATE SODIUM
     Indication: RHEUMATOID ARTHRITIS
  8. HUMIRA [Suspect]
     Active Substance: ADALIMUMAB
     Indication: RHEUMATOID ARTHRITIS
     Route: 058
     Dates: start: 20170314, end: 20170821
  9. FOLIC ACID. [Concomitant]
     Active Substance: FOLIC ACID
     Indication: RHEUMATOID ARTHRITIS
  10. NIACIN. [Concomitant]
     Active Substance: NIACIN
     Indication: PRODUCT USED FOR UNKNOWN INDICATION
  11. SYNTHROID [Concomitant]
     Active Substance: LEVOTHYROXINE SODIUM
     Indication: HYPOTHYROIDISM

REACTIONS (3)
  - Myocardial infarction [Fatal]
  - Hypertension [Fatal]
  - Hyperlipidaemia [Fatal]

NARRATIVE: CASE EVENT DATE: 20170821
